FAERS Safety Report 24205867 (Version 5)
Quarter: 2025Q2

REPORT INFORMATION
  Report Type: Spontaneous
  Country: US (occurrence: US)
  Receive Date: 20240813
  Receipt Date: 20250407
  Transmission Date: 20250716
  Serious: Yes (Hospitalization)
  Sender: BRISTOL MYERS SQUIBB
  Company Number: US-BRISTOL-MYERS SQUIBB COMPANY-2024-126272

PATIENT
  Age: 92 Year
  Sex: Female

DRUGS (3)
  1. POMALYST [Suspect]
     Active Substance: POMALIDOMIDE
     Indication: Plasma cell myeloma
     Dosage: TAKE 1 CAPSULE (2MG TOTAL) BY MOUTH EVERY MORNING (BEFORE BREAKFAST)
     Route: 048
  2. POMALYST [Suspect]
     Active Substance: POMALIDOMIDE
     Dosage: TAKE 1 CAPSULE BY MOUTH EVERY MORNING BEFORE BREAKFAST FOR 21 DAYS ON, THEN 7 DAYS OFF EVERY 28 DAYS
     Route: 048
  3. POMALYST [Suspect]
     Active Substance: POMALIDOMIDE
     Dosage: TAKE 1 CAPSULE BY MOUTH EVERY MORNING BEFORE BREAKFAST FOR 21 DAYS ON, THEN 7 DAYS OFF EVERY 28 DAYS
     Route: 048

REACTIONS (4)
  - Blood sodium decreased [Recovered/Resolved]
  - Dehydration [Recovered/Resolved]
  - Product dose omission issue [Unknown]
  - Intentional dose omission [Unknown]
